FAERS Safety Report 6857478-3 (Version None)
Quarter: 2010Q3

REPORT INFORMATION
  Report Type: 
  Country: None (occurrence: None)
  Receive Date: 20100719
  Receipt Date: 20080122
  Transmission Date: 20110219
  Serious: Yes (Hospitalization, Other)
  Sender: FDA-Public Use
  Company Number: US-PFIZER INC-2008008335

PATIENT
  Sex: Male
  Weight: 73.9 kg

DRUGS (10)
  1. CHANTIX [Suspect]
     Indication: SMOKING CESSATION THERAPY
     Dates: start: 20070901, end: 20071122
  2. DIGOXIN [Concomitant]
  3. ACETYLSALICYLIC ACID [Concomitant]
  4. HYTRIN [Concomitant]
  5. LASIX [Concomitant]
  6. K-DUR [Concomitant]
  7. ZESTRIL [Concomitant]
  8. CARDIZEM CD [Concomitant]
  9. TOPROL-XL [Concomitant]
  10. AMARYL [Concomitant]

REACTIONS (2)
  - ATRIAL FIBRILLATION [None]
  - PALPITATIONS [None]
